FAERS Safety Report 17909072 (Version 1)
Quarter: 2020Q2

REPORT INFORMATION
  Report Type: Report from Study
  Country: US (occurrence: US)
  Receive Date: 20200617
  Receipt Date: 20200617
  Transmission Date: 20200714
  Serious: Yes (Other)
  Sender: FDA-Public Use
  Company Number: US-MYLANLABS-2020M1057029

PATIENT
  Sex: Female

DRUGS (2)
  1. ABT 888 [Interacting]
     Active Substance: VELIPARIB
     Indication: OVARIAN CANCER
     Dosage: 50 MILLIGRAM, BID(ON DAYS 1-14)
     Route: 048
  2. DOXORUBICIN [Suspect]
     Active Substance: DOXORUBICIN
     Indication: OVARIAN CANCER
     Dosage: 22.5 MG/M2, CYCLE(ON DAY 1 OF A 28 DAY CYCLE)
     Route: 042

REACTIONS (2)
  - Thrombocytopenia [Not Recovered/Not Resolved]
  - Drug interaction [Not Recovered/Not Resolved]
